FAERS Safety Report 9251586 (Version 1)
Quarter: 2013Q1

REPORT INFORMATION
  Report Type: Spontaneous
  Country: US (occurrence: None)
  Receive Date: 20130305
  Receipt Date: 20130305
  Transmission Date: 20140127
  Serious: Yes (Other)
  Sender: FDA-Public Use
  Company Number: 163-21880-12071655

PATIENT
  Age: 60 Year
  Sex: Female

DRUGS (6)
  1. REVLIMID [Suspect]
     Indication: PLASMA CELL MYELOMA
     Dosage: 25MG, 21 IN 28 D. PO
     Route: 048
     Dates: start: 20120531
  2. DEXAMETHASONE )DEXAMETHASONE) [Concomitant]
  3. NAPROSYN (NAPROXEN) [Concomitant]
  4. AMLODIPINE (AMLODIPINE) [Concomitant]
  5. ADVAIR (SERETIDE MITE) [Concomitant]
  6. LISINOPRIL (LISINOPRIL) [Concomitant]

REACTIONS (1)
  - Rash [None]
